FAERS Safety Report 7296136-0 (Version None)
Quarter: 2011Q1

REPORT INFORMATION
  Report Type: 
  Country: None (occurrence: None)
  Receive Date: 20110216
  Receipt Date: 20110209
  Transmission Date: 20110831
  Serious: Yes (Disabling)
  Sender: FDA-Public Use
  Company Number: US-ROCHE-759473

PATIENT
  Age: 54 Year
  Sex: Female

DRUGS (6)
  1. SAVELLA [Interacting]
     Route: 048
     Dates: start: 20101201, end: 20101201
  2. SAVELLA [Interacting]
     Route: 048
     Dates: start: 20101201, end: 20101201
  3. SAVELLA [Interacting]
     Indication: FIBROMYALGIA
     Route: 048
     Dates: start: 20101201, end: 20101201
  4. SAVELLA [Interacting]
     Dosage: DOSE REDUCED
     Route: 048
     Dates: start: 20110120, end: 20110121
  5. KLONOPIN [Suspect]
     Route: 065
  6. SAVELLA [Interacting]
     Route: 048
     Dates: start: 20101201, end: 20101201

REACTIONS (11)
  - DIZZINESS [None]
  - ABDOMINAL PAIN UPPER [None]
  - HEADACHE [None]
  - SUICIDAL IDEATION [None]
  - TINNITUS [None]
  - NAUSEA [None]
  - INSOMNIA [None]
  - DECREASED APPETITE [None]
  - DRUG INTERACTION [None]
  - BLOOD PRESSURE INCREASED [None]
  - WEIGHT DECREASED [None]
